FAERS Safety Report 8144979 (Version 2)
Quarter: 2012Q4

REPORT INFORMATION
  Report Type: 
  Country: US (occurrence: US)
  Receive Date: 20110920
  Receipt Date: 20121112
  Transmission Date: 20130627
  Serious: Yes (Hospitalization)
  Sender: FDA-Public Use
  Company Number: US-US-EMD SERONO, INC.-7082844

PATIENT
  Age: 60 Year
  Sex: Female
  Weight: 55 kg

DRUGS (2)
  1. REBIF [Suspect]
     Indication: MULTIPLE SCLEROSIS
     Route: 058
     Dates: start: 20100329
  2. CALCIUM [Concomitant]
     Indication: OSTEOPOROSIS

REACTIONS (5)
  - Hip fracture [Recovered/Resolved]
  - Fall [Recovered/Resolved]
  - Haematoma [Not Recovered/Not Resolved]
  - Oedema peripheral [Not Recovered/Not Resolved]
  - Injection site erythema [Recovering/Resolving]
